FAERS Safety Report 24397691 (Version 1)
Quarter: 2024Q4

REPORT INFORMATION
  Report Type: Spontaneous
  Country: US (occurrence: US)
  Receive Date: 20241004
  Receipt Date: 20241004
  Transmission Date: 20250115
  Serious: Yes (Death, Other)
  Sender: ADMA BIOLOGICS
  Company Number: US-ADMA BIOLOGICS INC.-US-2024ADM000131

PATIENT
  Age: 63 Year
  Sex: Female

DRUGS (1)
  1. HUMAN IMMUNOGLOBULIN G [Suspect]
     Active Substance: HUMAN IMMUNOGLOBULIN G
     Indication: Cold type haemolytic anaemia
     Dosage: UNK, UNK
     Route: 042

REACTIONS (8)
  - Death [Fatal]
  - Pulseless electrical activity [Unknown]
  - Pulmonary embolism [Unknown]
  - Brain injury [Unknown]
  - Hypoxia [Unknown]
  - Condition aggravated [Unknown]
  - Bradycardia [Unknown]
  - Off label use [Unknown]
